FAERS Safety Report 6466499-4 (Version None)
Quarter: 2009Q4

REPORT INFORMATION
  Report Type: 
  Country: None (occurrence: None)
  Receive Date: 20091201
  Receipt Date: 20091201
  Transmission Date: 20100525
  Serious: Yes (Life-Threatening)
  Sender: FDA-Public Use
  Company Number: None

PATIENT
  Age: 58 Year
  Sex: Male

DRUGS (2)
  1. DEPAKOTE ER [Suspect]
     Indication: SCHIZOPHRENIA, UNDIFFERENTIATED TYPE
     Dosage: 500 MG TWICE DAILY PO
     Route: 048
     Dates: start: 20090917, end: 20090928
  2. SEROQUEL [Suspect]
     Indication: SCHIZOPHRENIA, UNDIFFERENTIATED TYPE
     Dosage: 100 MG 100 MG AM/500MG HS PO
     Route: 048
     Dates: start: 20090917, end: 20091016

REACTIONS (5)
  - INTERNATIONAL NORMALISED RATIO DECREASED [None]
  - INTERNATIONAL NORMALISED RATIO INCREASED [None]
  - NEUTROPENIA [None]
  - PANCYTOPENIA [None]
  - PROTHROMBIN TIME PROLONGED [None]
